FAERS Safety Report 9408456 (Version 2)
Quarter: 2013Q4

REPORT INFORMATION
  Report Type: Spontaneous
  Country: US (occurrence: US)
  Receive Date: 20130718
  Receipt Date: 20131210
  Transmission Date: 20140711
  Serious: Yes (Hospitalization)
  Sender: FDA-Public Use
  Company Number: US-B.I. PHARMACEUTICALS,INC./RIDGEFIELD-2013-BI-20565BP

PATIENT
  Sex: Male
  Weight: 91.63 kg

DRUGS (28)
  1. PRADAXA [Suspect]
     Indication: ATRIAL FIBRILLATION
     Dosage: 300 MG
     Dates: start: 20120412, end: 20120928
  2. PRADAXA [Suspect]
     Dosage: 300 MG
     Dates: start: 20121006, end: 20121128
  3. ASPIRIN [Suspect]
     Dosage: 325 MG
     Dates: end: 20120928
  4. ASPIRIN [Suspect]
     Dosage: 325 MG
     Dates: start: 20121006, end: 20121128
  5. 12-HOUR NASAL RELIEF SPRAY [Concomitant]
  6. ALBUTEROL INHALATION [Concomitant]
  7. ALLOPURINOL [Concomitant]
     Indication: GOUT
     Dosage: 200 MG
     Route: 048
  8. VITAMIN B12 [Concomitant]
     Indication: PERNICIOUS ANAEMIA
  9. DIGOXIN [Concomitant]
     Dosage: 0.25 MG
  10. FERROUS SULFATE [Concomitant]
     Dosage: 500 MG
     Route: 048
  11. FOLIC ACID [Concomitant]
     Dosage: 1 MG
     Route: 048
  12. FORADIL AEROSOL AEROLIZER [Concomitant]
     Dosage: 12 MCG
     Route: 055
  13. GABAPENTIN [Concomitant]
     Dosage: 300 MG
  14. MIRTAZAPINE [Concomitant]
     Dosage: 30 MG
     Route: 048
  15. NITROSTAT [Concomitant]
     Route: 060
  16. ORALONE DENT [Concomitant]
     Indication: APHTHOUS STOMATITIS
     Dosage: 0.3 MG
  17. PERCOCET [Concomitant]
     Route: 048
  18. TOPROL XL [Concomitant]
     Dosage: 100 MG
     Route: 048
  19. TORSEMIDE [Concomitant]
     Dosage: 20 MG
     Route: 048
  20. ZOCOR [Concomitant]
     Dosage: 40 MG
     Route: 048
  21. SLO-NIACIN [Concomitant]
  22. COREG [Concomitant]
  23. LISINOPRIL [Concomitant]
  24. CARAFATE [Concomitant]
  25. HALCION [Concomitant]
  26. SPIRONOLACTONE [Concomitant]
  27. OXYGEN [Concomitant]
     Indication: CHRONIC OBSTRUCTIVE PULMONARY DISEASE
  28. POTASSIUM CHLORIDE [Concomitant]
     Dosage: 20 MEQ
     Route: 048

REACTIONS (5)
  - Gastrointestinal haemorrhage [Unknown]
  - Haemorrhagic anaemia [Unknown]
  - Gastrointestinal haemorrhage [Unknown]
  - Renal failure acute [Recovered/Resolved]
  - Coagulopathy [Unknown]
